FAERS Safety Report 4539687-1 (Version None)
Quarter: 2004Q4

REPORT INFORMATION
  Report Type: 
  Country: None (occurrence: None)
  Receive Date: 20041223
  Receipt Date: 20041210
  Transmission Date: 20050328
  Serious: Yes (Hospitalization)
  Sender: FDA-Public Use
  Company Number: DEWYE064118MAR03

PATIENT
  Age: 67 Year
  Sex: Male

DRUGS (25)
  1. SIROLIMUS (SIROLIMUS, SOLUTION, 0) [Suspect]
     Indication: RENAL TRANSPLANT
     Dosage: SEE IMAGE
     Route: 048
     Dates: start: 20030114, end: 20030114
  2. SIROLIMUS (SIROLIMUS, SOLUTION, 0) [Suspect]
     Indication: RENAL TRANSPLANT
     Dosage: SEE IMAGE
     Route: 048
     Dates: start: 20030115, end: 20030118
  3. SIROLIMUS (SIROLIMUS, SOLUTION, 0) [Suspect]
     Indication: RENAL TRANSPLANT
     Dosage: SEE IMAGE
     Route: 048
     Dates: start: 20030119, end: 20030119
  4. SIROLIMUS (SIROLIMUS, SOLUTION, 0) [Suspect]
     Indication: RENAL TRANSPLANT
     Dosage: SEE IMAGE
     Route: 048
     Dates: start: 20030120, end: 20030130
  5. SIROLIMUS (SIROLIMUS, SOLUTION, 0) [Suspect]
     Indication: RENAL TRANSPLANT
     Dosage: SEE IMAGE
     Route: 048
     Dates: start: 20030131, end: 20030225
  6. SIROLIMUS (SIROLIMUS, SOLUTION, 0) [Suspect]
     Indication: RENAL TRANSPLANT
     Dosage: SEE IMAGE
     Route: 048
     Dates: start: 20030226, end: 20030306
  7. SIROLIMUS (SIROLIMUS, SOLUTION, 0) [Suspect]
     Indication: RENAL TRANSPLANT
     Dosage: SEE IMAGE
     Route: 048
     Dates: start: 20030307, end: 20030310
  8. SIROLIMUS (SIROLIMUS, SOLUTION, 0) [Suspect]
     Indication: RENAL TRANSPLANT
     Dosage: SEE IMAGE
     Route: 048
     Dates: start: 20030311, end: 20030312
  9. SIROLIMUS (SIROLIMUS, SOLUTION, 0) [Suspect]
     Indication: RENAL TRANSPLANT
     Dosage: SEE IMAGE
     Route: 048
     Dates: start: 20030313, end: 20030318
  10. SIROLIMUS (SIROLIMUS, SOLUTION, 0) [Suspect]
     Indication: RENAL TRANSPLANT
     Dosage: SEE IMAGE
     Route: 048
     Dates: start: 20030319, end: 20030403
  11. SIROLIMUS (SIROLIMUS, SOLUTION, 0) [Suspect]
     Indication: RENAL TRANSPLANT
     Dosage: SEE IMAGE
     Route: 048
     Dates: start: 20030404, end: 20030516
  12. SIROLIMUS (SIROLIMUS, SOLUTION, 0) [Suspect]
     Indication: RENAL TRANSPLANT
     Dosage: SEE IMAGE
     Route: 048
     Dates: start: 20030517, end: 20030710
  13. PREDNISONE TAB [Concomitant]
  14. RAMIPRIL [Concomitant]
  15. BELOC ZOK (METOPROLOL SUCCINATE) [Concomitant]
  16. CARDULAR (DOXAZOSIN MESILATE) [Concomitant]
  17. CLONIDINE [Concomitant]
  18. BAYOTENSIN (NITRENDIPINE) [Concomitant]
  19. ZOCOR [Concomitant]
  20. ALLOPURINOL [Concomitant]
  21. FUROSEMIDE [Concomitant]
  22. VIGANTOLETTEN (COLECALCIFEROL) [Concomitant]
  23. NEPHROTRANS (SODIUM BICARBONATE) [Concomitant]
  24. PANTOZOL (PANTOPRAZOLE SODIUM) [Concomitant]
  25. AMPHO-MORONAL (AMPHOTERICIN B) [Concomitant]

REACTIONS (10)
  - ASCITES [None]
  - GASTRIC HAEMORRHAGE [None]
  - GASTRITIS EROSIVE [None]
  - HAEMOGLOBIN DECREASED [None]
  - OEDEMA PERIPHERAL [None]
  - PLEURAL EFFUSION [None]
  - PNEUMONIA [None]
  - PULMONARY ALVEOLAR HAEMORRHAGE [None]
  - PULMONARY OEDEMA [None]
  - RESPIRATORY MONILIASIS [None]
